FAERS Safety Report 16567956 (Version 1)
Quarter: 2019Q3

REPORT INFORMATION
  Report Type: Spontaneous
  Country: DE (occurrence: DE)
  Receive Date: 20190712
  Receipt Date: 20190712
  Transmission Date: 20191004
  Serious: Yes (Hospitalization)
  Sender: FDA-Public Use
  Company Number: DE-TEVA-2019-DE-1075832

PATIENT
  Age: 24 Year
  Sex: Male
  Weight: 68 kg

DRUGS (4)
  1. VALDOXAN [Suspect]
     Active Substance: AGOMELATINE
     Dosage: 25 MG, 0-0-0-1
  2. LEVOTHYROXIN [Concomitant]
     Active Substance: LEVOTHYROXINE
     Dosage: 50 ?G, 1-0-0-0
     Route: 065
  3. DOXYCYCLIN [Suspect]
     Active Substance: DOXYCYCLINE
     Dosage: 100 MG, 1-0-1-0
     Route: 065
  4. ELONTRIL 300MG [Suspect]
     Active Substance: BUPROPION HYDROCHLORIDE
     Dosage: 300 MG, PAUSED

REACTIONS (3)
  - Joint swelling [Unknown]
  - Musculoskeletal pain [Unknown]
  - Arthralgia [Unknown]
